FAERS Safety Report 9497503 (Version 1)
Quarter: 2013Q3

REPORT INFORMATION
  Report Type: Spontaneous
  Country: IT (occurrence: None)
  Receive Date: 20130830
  Receipt Date: 20130830
  Transmission Date: 20140515
  Serious: Yes (Hospitalization)
  Sender: FDA-Public Use
  Company Number: AUR-APL-2013-07096

PATIENT
  Age: 91 Year
  Sex: Male

DRUGS (5)
  1. BISOPROLOL [Suspect]
     Indication: PRODUCT USED FOR UNKNOWN INDICATION
     Dosage: 1 DOSAGE FORMS, TOTAL, ORAL
     Route: 048
     Dates: start: 20130601, end: 20130601
  2. NORVASC (AMLODIPINE BESILATE) [Concomitant]
  3. LORAZEPAM (LORAZEPAM) [Concomitant]
  4. ALLOPURINOL [Concomitant]
  5. PROPAFENONE (PROPAFENONE) [Concomitant]

REACTIONS (2)
  - Head injury [None]
  - Syncope [None]
